FAERS Safety Report 9104748 (Version 4)
Quarter: 2013Q2

REPORT INFORMATION
  Report Type: Spontaneous
  Country: JP (occurrence: JP)
  Receive Date: 20130220
  Receipt Date: 20130418
  Transmission Date: 20140414
  Serious: Yes (Death)
  Sender: FDA-Public Use
  Company Number: JP-ROCHE-1192280

PATIENT
  Age: 68 Year
  Sex: Male
  Weight: 82 kg

DRUGS (5)
  1. ACTEMRA [Suspect]
     Indication: CASTLEMAN^S DISEASE
     Route: 041
     Dates: start: 20130201, end: 20130201
  2. PREDONINE [Suspect]
     Indication: CASTLEMAN^S DISEASE
     Route: 048
     Dates: start: 20130123, end: 20130131
  3. PREDONINE [Suspect]
     Indication: CASTLEMAN^S DISEASE
     Route: 048
     Dates: start: 20130201, end: 20130208
  4. NORADRENALINE [Concomitant]
     Indication: SEPTIC SHOCK
     Route: 042
     Dates: start: 20130127
  5. RECOMODULIN [Concomitant]
     Indication: DISSEMINATED INTRAVASCULAR COAGULATION
     Route: 042
     Dates: start: 20130103

REACTIONS (1)
  - Multi-organ failure [Fatal]
